FAERS Safety Report 8861669 (Version 1)
Quarter: 2012Q4

REPORT INFORMATION
  Report Type: 
  Country: US (occurrence: US)
  Receive Date: 20121025
  Receipt Date: 20121025
  Transmission Date: 20130627
  Serious: No
  Sender: FDA-Public Use
  Company Number: US-AMGEN-USASP2012019643

PATIENT
  Sex: Male

DRUGS (7)
  1. ENBREL [Suspect]
     Indication: ANKYLOSING SPONDYLITIS
     Dosage: 50 mg, UNK
     Dates: start: 201111
  2. LEVOCETIRIZINE [Concomitant]
  3. ALFUZOSIN [Concomitant]
  4. SIMVASTATIN [Concomitant]
  5. TRIZIPIN [Concomitant]
  6. HYDROCODONE/APAP [Concomitant]
     Dosage: UNK
  7. DICLOFENAC [Concomitant]

REACTIONS (1)
  - Protein total increased [Unknown]
